FAERS Safety Report 9975632 (Version 1)
Quarter: 2014Q1

REPORT INFORMATION
  Report Type: Spontaneous
  Country: US (occurrence: US)
  Receive Date: 20140306
  Receipt Date: 20140306
  Transmission Date: 20141002
  Serious: No
  Sender: FDA-Public Use
  Company Number: US-ABBVIE-13P-163-1159764-00

PATIENT
  Age: 45 Year
  Sex: Female
  Weight: 66.74 kg

DRUGS (5)
  1. HUMIRA [Suspect]
     Indication: COLITIS ULCERATIVE
     Dates: start: 20131004, end: 20131004
  2. HUMIRA [Suspect]
     Dates: start: 20131018, end: 20131018
  3. PENTASA [Concomitant]
     Indication: COLITIS ULCERATIVE
  4. UCERIS [Concomitant]
     Indication: COLITIS ULCERATIVE
  5. IRON [Concomitant]
     Indication: ANAEMIA

REACTIONS (5)
  - Injection site bruising [Recovered/Resolved]
  - Abnormal faeces [Not Recovered/Not Resolved]
  - Dysgeusia [Not Recovered/Not Resolved]
  - Injection site pain [Not Recovered/Not Resolved]
  - Colitis ulcerative [Not Recovered/Not Resolved]
